FAERS Safety Report 8481492-8 (Version None)
Quarter: 2012Q3

REPORT INFORMATION
  Report Type: 
  Country: None (occurrence: None)
  Receive Date: 20120702
  Receipt Date: 20120619
  Transmission Date: 20120928
  Serious: Yes (Other)
  Sender: FDA-Public Use
  Company Number: JP-VERTEX PHARMACEUTICALS INC.-AE-2012-009242

PATIENT
  Age: 46 Year
  Sex: Male

DRUGS (6)
  1. TELAVIC (TELAPREVIR) [Suspect]
     Indication: HEPATITIS C
     Route: 048
     Dates: start: 20120424
  2. REBETOL [Concomitant]
     Route: 048
     Dates: start: 20120529
  3. REBETOL [Concomitant]
     Indication: HEPATITIS C
     Route: 048
     Dates: start: 20120424, end: 20120528
  4. PEG-INTRON [Concomitant]
     Indication: HEPATITIS C
     Route: 058
     Dates: start: 20120424, end: 20120514
  5. PEG-INTRON [Concomitant]
     Route: 058
     Dates: start: 20120515, end: 20120604
  6. PEG-INTRON [Concomitant]
     Route: 058
     Dates: start: 20120605

REACTIONS (4)
  - NEUTROPHIL COUNT DECREASED [None]
  - RASH [None]
  - ANAEMIA [None]
  - HYPERURICAEMIA [None]
